FAERS Safety Report 8934215 (Version 3)
Quarter: 2013Q1

REPORT INFORMATION
  Report Type: Report from Study
  Country: JP (occurrence: JP)
  Receive Date: 20121129
  Receipt Date: 20130114
  Transmission Date: 20140127
  Serious: Yes (Hospitalization, Other)
  Sender: FDA-Public Use
  Company Number: JP-009507513-1211JPN011394

PATIENT
  Age: 69 Year
  Sex: Male
  Weight: 72 kg

DRUGS (13)
  1. PEGINTRON [Suspect]
     Indication: CHRONIC HEPATITIS C
     Dosage: DAILY DOSE UNKNOWN
     Route: 058
     Dates: start: 20120925, end: 20121020
  2. REBETOL [Suspect]
     Indication: CHRONIC HEPATITIS C
     Dosage: 800 MG, QD
     Route: 048
     Dates: start: 20120925, end: 20121001
  3. REBETOL [Suspect]
     Dosage: 600 MG, QD
     Route: 048
     Dates: start: 20121002, end: 20121008
  4. REBETOL [Suspect]
     Dosage: 400 MG, QD
     Route: 048
     Dates: start: 20121009, end: 20121020
  5. TELAVIC [Suspect]
     Indication: CHRONIC HEPATITIS C
     Dosage: 2250MG, QD
     Route: 048
     Dates: start: 20120925, end: 20120928
  6. TELAVIC [Suspect]
     Dosage: 1500 MG, QD
     Route: 048
     Dates: start: 20120929, end: 20121020
  7. SENNOSIDES [Concomitant]
     Indication: CONSTIPATION
     Dosage: 12 MG/DAY, AS NEEDED, FORMULATION:POR
     Route: 048
     Dates: end: 20121020
  8. GASTER D [Concomitant]
     Indication: GASTRITIS
     Dosage: 40 MG, QD
     Route: 048
     Dates: end: 20121020
  9. MAGNESIUM OXIDE [Concomitant]
     Indication: CONSTIPATION
     Dosage: 1.8 G, QD
     Route: 048
     Dates: end: 20121020
  10. LANTUS [Concomitant]
     Indication: DIABETES MELLITUS
     Dosage: 22 UNITS/DAY
     Route: 058
     Dates: end: 20121020
  11. PREDONINE [Concomitant]
     Indication: CHRONIC HEPATITIS C
     Dosage: 15 MG, QD
     Route: 048
     Dates: start: 20120929, end: 20121020
  12. ALOSITOL [Concomitant]
     Indication: CHRONIC HEPATITIS C
     Dosage: 100 MG, QD
     Route: 048
     Dates: start: 20120929, end: 20121020
  13. LOPERAMIDE HYDROCHLORIDE [Concomitant]
     Indication: CHRONIC HEPATITIS C
     Dosage: 1 DF, QD
     Route: 048
     Dates: start: 20121016, end: 20121020

REACTIONS (7)
  - Hyperuricaemia [Recovering/Resolving]
  - Haemoglobin decreased [Not Recovered/Not Resolved]
  - Diarrhoea [Recovering/Resolving]
  - Renal failure acute [Recovering/Resolving]
  - Hyperkalaemia [Unknown]
  - Rhabdomyolysis [Unknown]
  - Altered state of consciousness [Unknown]
